FAERS Safety Report 25106524 (Version 2)
Quarter: 2025Q2

REPORT INFORMATION
  Report Type: Spontaneous
  Country: US (occurrence: US)
  Receive Date: 20250321
  Receipt Date: 20250404
  Transmission Date: 20250716
  Serious: Yes (Other)
  Sender: SANDOZ
  Company Number: US-SANDOZ-SDZ2025US016872

PATIENT
  Sex: Female

DRUGS (1)
  1. OMEPRAZOLE [Suspect]
     Active Substance: OMEPRAZOLE
     Indication: Product used for unknown indication
     Route: 065

REACTIONS (19)
  - Diabetes mellitus [Unknown]
  - Iron deficiency [Unknown]
  - Metabolic syndrome [Unknown]
  - Colon injury [Unknown]
  - Granuloma [Unknown]
  - Haemorrhoids [Unknown]
  - Hypotension [Unknown]
  - Lipoma [Unknown]
  - Polyp [Unknown]
  - Thyroid disorder [Unknown]
  - Sleep apnoea syndrome [Unknown]
  - Hypoacusis [Unknown]
  - Multi-organ disorder [Unknown]
  - Feeding disorder [Unknown]
  - Hypertension [Unknown]
  - Abdominal pain lower [Unknown]
  - Hepatic steatosis [Unknown]
  - Jaundice [Unknown]
  - Hypersensitivity [Unknown]
